FAERS Safety Report 6148648-0 (Version None)
Quarter: 2009Q2

REPORT INFORMATION
  Report Type: 
  Country: None (occurrence: None)
  Receive Date: 20090406
  Receipt Date: 20090406
  Transmission Date: 20091009
  Serious: Yes (Other)
  Sender: FDA-Public Use
  Company Number: None

PATIENT
  Age: 25 Year
  Sex: Female
  Weight: 89.8122 kg

DRUGS (2)
  1. MEDROL [Suspect]
     Indication: INTERVERTEBRAL DISC PROTRUSION
     Dosage: 24 MG PER DIRECTIONS PO, 1 DOSE
     Route: 048
     Dates: start: 20090311, end: 20090311
  2. MEDROL [Suspect]
     Indication: RADICULOPATHY
     Dosage: 24 MG PER DIRECTIONS PO, 1 DOSE
     Route: 048
     Dates: start: 20090311, end: 20090311

REACTIONS (4)
  - CHEST DISCOMFORT [None]
  - HOT FLUSH [None]
  - HYPOAESTHESIA [None]
  - SENSATION OF HEAVINESS [None]
